FAERS Safety Report 16337172 (Version 3)
Quarter: 2019Q2

REPORT INFORMATION
  Report Type: Spontaneous
  Country: US (occurrence: US)
  Receive Date: 20190521
  Receipt Date: 20190528
  Transmission Date: 20190711
  Serious: No
  Sender: FDA-Public Use
  Company Number: US-PFIZER INC-2018120535

PATIENT
  Age: 14 Year
  Sex: Male
  Weight: 74.84 kg

DRUGS (5)
  1. GENOTROPIN [Suspect]
     Active Substance: SOMATROPIN
     Dosage: UNK [2.2 INJECTION PUT NEEDLE ON LOAD MEDICATION AND GIVE SHOT EVERY NIGHT ON LEG OR SHOULDER]
     Dates: start: 2018
  2. GENOTROPIN [Suspect]
     Active Substance: SOMATROPIN
     Dosage: 2.2 MG, DAILY
  3. GENOTROPIN [Suspect]
     Active Substance: SOMATROPIN
     Dosage: UNK [2.2 INJECTION PUT NEEDLE ON LOAD MEDICATION AND GIVE SHOT EVERY NIGHT ON LEG OR SHOULDER]
     Dates: start: 2018
  4. GENOTROPIN [Suspect]
     Active Substance: SOMATROPIN
     Indication: GROWTH HORMONE DEFICIENCY
     Dosage: 2.4 MG, ONCE DAILY AT BEDTIME
     Route: 058
     Dates: start: 20171011
  5. GENOTROPIN [Suspect]
     Active Substance: SOMATROPIN
     Dosage: 2.2 MG, DAILY
     Dates: start: 20171011

REACTIONS (6)
  - Behaviour disorder [Unknown]
  - Apathy [Unknown]
  - Irritability [Unknown]
  - Influenza [Recovering/Resolving]
  - Product dose omission [Unknown]
  - Device issue [Unknown]

NARRATIVE: CASE EVENT DATE: 20190513
